FAERS Safety Report 25285440 (Version 1)
Quarter: 2025Q2

REPORT INFORMATION
  Report Type: Spontaneous
  Country: US (occurrence: US)
  Receive Date: 20250509
  Receipt Date: 20250509
  Transmission Date: 20250716
  Serious: No
  Sender: KYOWA
  Company Number: US-KYOWAKIRIN-2025KK008265

PATIENT

DRUGS (2)
  1. CRYSVITA [Suspect]
     Active Substance: BUROSUMAB-TWZA
     Indication: Hereditary hypophosphataemic rickets
     Dosage: UNK, 1X/MONTH
     Route: 058
     Dates: start: 20240528
  2. CRYSVITA [Suspect]
     Active Substance: BUROSUMAB-TWZA
     Dosage: UNK, 1X/MONTH
     Route: 058

REACTIONS (1)
  - Blood phosphorus increased [Not Recovered/Not Resolved]
